FAERS Safety Report 17766992 (Version 2)
Quarter: 2020Q3

REPORT INFORMATION
  Report Type: Report from Study
  Country: None (occurrence: CA)
  Receive Date: 20200511
  Receipt Date: 20200729
  Transmission Date: 20201102
  Serious: Yes (Disabling)
  Sender: FDA-Public Use
  Company Number: CA-ABBVIE-20K-028-3381929-00

PATIENT
  Sex: Female

DRUGS (2)
  1. HUMIRA [Suspect]
     Active Substance: ADALIMUMAB
     Indication: HIDRADENITIS
     Route: 058
     Dates: start: 20190925
  2. HUMIRA [Suspect]
     Active Substance: ADALIMUMAB
     Dosage: DOSE INCREASED
     Route: 058

REACTIONS (8)
  - Mobility decreased [Unknown]
  - Pain [Not Recovered/Not Resolved]
  - Impaired work ability [Unknown]
  - Drug ineffective [Not Recovered/Not Resolved]
  - Skin lesion [Not Recovered/Not Resolved]
  - Skin haemorrhage [Not Recovered/Not Resolved]
  - Mass [Not Recovered/Not Resolved]
  - Disability [Unknown]

NARRATIVE: CASE EVENT DATE: 2015
